FAERS Safety Report 4451593-X (Version None)
Quarter: 2004Q3

REPORT INFORMATION
  Report Type: 
  Country: None (occurrence: None)
  Receive Date: 20040915
  Receipt Date: 20040901
  Transmission Date: 20050211
  Serious: Yes (Hospitalization)
  Sender: FDA-Public Use
  Company Number: 04P-131-0272336-00

PATIENT
  Age: 46 Year
  Sex: Female
  Weight: 86.637 kg

DRUGS (16)
  1. KALETRA [Suspect]
     Indication: HIV INFECTION
     Dosage: 2 IN 1 D PER ORAL
     Route: 048
     Dates: start: 20030116
  2. VIREAD [Concomitant]
  3. LAMIVUDINE [Concomitant]
  4. DAPSONE [Concomitant]
  5. VITACEL [Concomitant]
  6. ATORVASTATIN CALCIUM [Concomitant]
  7. AMLODIPINE BESYLATE [Concomitant]
  8. FERROUS TARTRATE [Concomitant]
  9. CALCIUM [Concomitant]
  10. GLIPIZIDE [Concomitant]
  11. GLUCOPHAGE [Concomitant]
  12. NITRO [Concomitant]
  13. ZITHROMAX [Concomitant]
  14. DONATUSSIN DC [Concomitant]
  15. THERA LOTION [Concomitant]
  16. BETAMETHASONE DIPROPIONATE [Concomitant]

REACTIONS (2)
  - HYPOKALAEMIA [None]
  - PANCREATITIS [None]
